FAERS Safety Report 9932841 (Version 2)
Quarter: 2014Q1

REPORT INFORMATION
  Report Type: Report from Study
  Country: US (occurrence: US)
  Receive Date: 20140228
  Receipt Date: 20140228
  Transmission Date: 20141002
  Serious: No
  Sender: FDA-Public Use
  Company Number: US-ABBVIE-13P-163-1051624-00

PATIENT
  Age: 58 Year
  Sex: Male
  Weight: 113.5 kg

DRUGS (4)
  1. ANDROGEL [Suspect]
     Indication: BLOOD TESTOSTERONE DECREASED
     Route: 061
     Dates: start: 20130114, end: 20130306
  2. ANDROGEL [Suspect]
     Indication: TESTICULAR FAILURE
  3. COUMADIN [Concomitant]
     Indication: LYMPHOMA
  4. ALLOPURINOL [Concomitant]
     Indication: CHEMOTHERAPY

REACTIONS (3)
  - Ejaculation failure [Not Recovered/Not Resolved]
  - Ejaculation failure [Not Recovered/Not Resolved]
  - Drug ineffective [Not Recovered/Not Resolved]
